FAERS Safety Report 4322087-7 (Version None)
Quarter: 2004Q1

REPORT INFORMATION
  Report Type: 
  Country: None (occurrence: None)
  Receive Date: 20040323
  Receipt Date: 20031219
  Transmission Date: 20041129
  Serious: Yes (Hospitalization)
  Sender: FDA-Public Use
  Company Number: FR-GLAXOSMITHKLINE-B0318213A

PATIENT
  Age: 51 Year
  Sex: Female
  Weight: 73 kg

DRUGS (4)
  1. AUGMENTIN [Suspect]
     Indication: ERYSIPELAS
     Dosage: 1G THREE TIMES PER DAY
     Route: 048
     Dates: start: 20031029, end: 20031102
  2. ACETAMINOPHEN [Concomitant]
     Indication: ERYSIPELAS
     Dosage: 1G SINGLE DOSE
     Route: 048
     Dates: start: 20031028, end: 20031028
  3. ADVIL [Concomitant]
     Indication: ERYSIPELAS
     Dosage: 2TAB SINGLE DOSE
     Route: 048
     Dates: start: 20031028, end: 20031028
  4. OFLOCET [Concomitant]
     Indication: ERYSIPELAS
     Dosage: 200MG PER DAY
     Route: 048
     Dates: start: 20031102, end: 20031102

REACTIONS (6)
  - ERYTHEMA [None]
  - PERIORBITAL OEDEMA [None]
  - PRURITUS [None]
  - PYREXIA [None]
  - RASH MACULO-PAPULAR [None]
  - TOXIC SKIN ERUPTION [None]
